FAERS Safety Report 7967203-0 (Version None)
Quarter: 2011Q4

REPORT INFORMATION
  Report Type: 
  Country: None (occurrence: None)
  Receive Date: 20111209
  Receipt Date: 20111130
  Transmission Date: 20120403
  Serious: Yes (Other)
  Sender: FDA-Public Use
  Company Number: US-JNJFOC-20111200318

PATIENT
  Sex: Female
  Weight: 58.97 kg

DRUGS (2)
  1. NUCYNTA [Suspect]
     Indication: PROCEDURAL PAIN
     Dosage: 1-2 TABLETS EVERY 4-6 HOURS
     Route: 048
     Dates: start: 20100101, end: 20100101
  2. LODINE [Concomitant]
     Indication: BACK DISORDER
     Dosage: AS NEEDED
     Route: 048
     Dates: start: 20100101

REACTIONS (2)
  - ROTATOR CUFF SYNDROME [None]
  - VOMITING [None]
